FAERS Safety Report 9621296 (Version 1)
Quarter: 2013Q4

REPORT INFORMATION
  Report Type: Spontaneous
  Country: US (occurrence: None)
  Receive Date: 20131011
  Receipt Date: 20131011
  Transmission Date: 20140711
  Serious: Yes (Life-Threatening, Hospitalization)
  Sender: FDA-Public Use
  Company Number: None

PATIENT
  Age: 82 Year
  Sex: Male
  Weight: 80.29 kg

DRUGS (6)
  1. PHENYTOIN [Suspect]
     Indication: CONVULSION
     Dosage: 1 PILL BID ORAL
     Route: 048
  2. LEVEMIR [Concomitant]
  3. PLAVIX [Concomitant]
  4. SIMVASTATIN [Concomitant]
  5. LISINOPRIL [Concomitant]
  6. GLYBURIDE/METFORMIN [Concomitant]

REACTIONS (5)
  - Pyrexia [None]
  - Confusional state [None]
  - Rash [None]
  - Pallor [None]
  - Apnoea [None]
